FAERS Safety Report 7945109-0 (Version None)
Quarter: 2011Q4

REPORT INFORMATION
  Report Type: 
  Country: None (occurrence: None)
  Receive Date: 20111129
  Receipt Date: 20111129
  Transmission Date: 20120403
  Serious: Yes (Hospitalization)
  Sender: FDA-Public Use
  Company Number: None

PATIENT
  Age: 42 Year
  Sex: Male
  Weight: 72.121 kg

DRUGS (1)
  1. BRIVANIB [Suspect]
     Indication: RENAL CANCER
     Dosage: 800MG
     Route: 048
     Dates: start: 20111111, end: 20111127

REACTIONS (3)
  - CONSTIPATION [None]
  - ABDOMINAL PAIN [None]
  - HAEMOGLOBIN DECREASED [None]
